FAERS Safety Report 6769207-2 (Version None)
Quarter: 2010Q2

REPORT INFORMATION
  Report Type: 
  Country: None (occurrence: None)
  Receive Date: 20100615
  Receipt Date: 20100609
  Transmission Date: 20101027
  Serious: Yes (Death, Hospitalization, Other)
  Sender: FDA-Public Use
  Company Number: PHHY2010US18727

PATIENT
  Sex: Female

DRUGS (6)
  1. ZOMETA [Suspect]
     Indication: BREAST CANCER
     Dosage: EVERY 4 WEEKS
     Route: 042
     Dates: start: 20091030
  2. LISINOPRIL [Concomitant]
     Dosage: 20 MG, UNK
  3. CRESTOR [Concomitant]
     Dosage: 5 MG, UNK
  4. METOPROLOL TARTRATE [Concomitant]
     Dosage: 100 MG, UNK
  5. ZETIA [Concomitant]
     Dosage: 10 MG, UNK
  6. TAMOXIFEN [Concomitant]
     Indication: BREAST CANCER
     Dosage: 20 MG DAILY

REACTIONS (8)
  - ATRIAL FIBRILLATION [None]
  - BLOOD GLUCOSE INCREASED [None]
  - DEATH [None]
  - GENERAL PHYSICAL HEALTH DETERIORATION [None]
  - HYPERCALCAEMIA [None]
  - MALIGNANT NEOPLASM PROGRESSION [None]
  - MENINGIOMA [None]
  - RIB FRACTURE [None]
